FAERS Safety Report 18364572 (Version 3)
Quarter: 2020Q4

REPORT INFORMATION
  Report Type: Spontaneous
  Country: PT (occurrence: PT)
  Receive Date: 20201009
  Receipt Date: 20201103
  Transmission Date: 20210114
  Serious: Yes (Hospitalization, Other)
  Sender: FDA-Public Use
  Company Number: NVSC2020PT271060

PATIENT
  Age: 55 Year
  Sex: Male

DRUGS (2)
  1. AMOXICILLIN, CLAVULANIC ACID [Suspect]
     Active Substance: AMOXICILLIN\CLAVULANIC ACID
     Indication: PRODUCT USED FOR UNKNOWN INDICATION
     Dosage: UNK
     Route: 065
  2. LICORICE. [Concomitant]
     Active Substance: LICORICE
     Indication: PRODUCT USED FOR UNKNOWN INDICATION
     Dosage: UNK UNK, QD (DAILY CONSUMPTION)
     Route: 065

REACTIONS (7)
  - Eosinophilia [Unknown]
  - Hypertensive heart disease [Unknown]
  - Hypertension [Unknown]
  - Pyrexia [Unknown]
  - Nephrosclerosis [Unknown]
  - Toxic skin eruption [Unknown]
  - Rash maculo-papular [Unknown]
